FAERS Safety Report 16849331 (Version 1)
Quarter: 2019Q3

REPORT INFORMATION
  Report Type: Spontaneous
  Country: IN (occurrence: IN)
  Receive Date: 20190925
  Receipt Date: 20190925
  Transmission Date: 20191005
  Serious: Yes (Hospitalization, Other)
  Sender: FDA-Public Use
  Company Number: IN-MACLEODS PHARMACEUTICALS US LTD-MAC2019023017

PATIENT

DRUGS (1)
  1. OLANZAPINE. [Suspect]
     Active Substance: OLANZAPINE
     Indication: SCHIZOPHRENIA
     Dosage: UNK, LONG ACTING INJECTION
     Route: 065

REACTIONS (6)
  - Sinus arrhythmia [Recovered/Resolved]
  - Hypertension [Recovered/Resolved]
  - Post-injection delirium sedation syndrome [Recovered/Resolved]
  - Tachycardia [Recovered/Resolved]
  - Ataxia [Recovered/Resolved]
  - Incorrect route of product administration [Recovered/Resolved]
